FAERS Safety Report 8920506 (Version 1)
Quarter: 2012Q4

REPORT INFORMATION
  Report Type: 
  Country: DE (occurrence: BR)
  Receive Date: 20121121
  Receipt Date: 20121121
  Transmission Date: 20130627
  Serious: No
  Sender: FDA-Public Use
  Company Number: BR-FRI-1000040575

PATIENT
  Sex: Female

DRUGS (3)
  1. ROFLUMILAST [Suspect]
     Dosage: 1 DF
     Route: 048
  2. ROFLUMILAST [Suspect]
     Dosage: 1 DF QOD
     Route: 048
  3. ROFLUMILAST [Suspect]
     Dosage: 1 DF every three days
     Route: 048

REACTIONS (3)
  - Hypoglycaemia [Unknown]
  - Diarrhoea [Unknown]
  - Dizziness [Unknown]
